FAERS Safety Report 8622598 (Version 4)
Quarter: 2012Q4

REPORT INFORMATION
  Report Type: 
  Country: US (occurrence: US)
  Receive Date: 20120619
  Receipt Date: 20121230
  Transmission Date: 20130627
  Serious: Yes (Other)
  Sender: FDA-Public Use
  Company Number: US-US-EMD SERONO, INC.-7139242

PATIENT
  Sex: Female
  Weight: 46 kg

DRUGS (2)
  1. REBIF [Suspect]
     Indication: MULTIPLE SCLEROSIS
     Route: 058
     Dates: start: 20120309
  2. NAPROXEN [Concomitant]
     Indication: PREMEDICATION

REACTIONS (6)
  - Cardiac septal defect [Unknown]
  - Muscle strain [Unknown]
  - Injection site induration [Not Recovered/Not Resolved]
  - Injection site bruising [Not Recovered/Not Resolved]
  - Injection site pain [Not Recovered/Not Resolved]
  - Hypersensitivity [Not Recovered/Not Resolved]
